FAERS Safety Report 17137466 (Version 1)
Quarter: 2019Q4

REPORT INFORMATION
  Report Type: Other
  Country: US (occurrence: US)
  Receive Date: 20191210
  Receipt Date: 20191210
  Transmission Date: 20200122
  Serious: Yes (Hospitalization, Other)
  Sender: FDA-Public Use
  Company Number: US-INVATECH-000010

PATIENT
  Age: 4 Year
  Sex: Female

DRUGS (2)
  1. SODIUM POLYSTYRENE SULFONATE. [Suspect]
     Active Substance: SODIUM POLYSTYRENE SULFONATE
     Indication: CHELATION THERAPY
  2. SEVELAMER [Suspect]
     Active Substance: SEVELAMER
     Indication: CHELATION THERAPY
     Route: 048

REACTIONS (6)
  - Intestinal polyp [Recovered/Resolved]
  - Excessive granulation tissue [Recovered/Resolved]
  - Rectal haemorrhage [Recovered/Resolved]
  - Gastrointestinal injury [Recovered/Resolved]
  - Haematochezia [Recovered/Resolved]
  - Ulcer [Recovered/Resolved]
